FAERS Safety Report 5909346-9 (Version None)
Quarter: 2008Q4

REPORT INFORMATION
  Report Type: 
  Country: None (occurrence: None)
  Receive Date: 20081006
  Receipt Date: 20080924
  Transmission Date: 20090506
  Serious: Yes (Other)
  Sender: FDA-Public Use
  Company Number: CH-PFIZER INC-2008080662

PATIENT
  Sex: Female

DRUGS (5)
  1. SUTENT [Suspect]
     Dates: start: 20080601
  2. ALL OTHER THERAPEUTIC PRODUCTS [Concomitant]
  3. OMEPRAZOLE [Concomitant]
  4. LEXOTANIL [Concomitant]
  5. PONSTAN [Concomitant]

REACTIONS (1)
  - VISUAL FIELD DEFECT [None]
